FAERS Safety Report 11158957 (Version 1)
Quarter: 2015Q2

REPORT INFORMATION
  Report Type: Spontaneous
  Country: US (occurrence: None)
  Receive Date: 20150602
  Receipt Date: 20150602
  Transmission Date: 20150821
  Serious: No
  Sender: FDA-Public Use
  Company Number: None

PATIENT

DRUGS (13)
  1. FOLIC ACID. [Concomitant]
     Active Substance: FOLIC ACID
  2. IBRANCE [Suspect]
     Active Substance: PALBOCICLIB
     Indication: BREAST CANCER
     Dosage: 125MG  QD 21 OF 28 DAYS  ORAL
     Route: 048
  3. VITAMIN D3 [Concomitant]
     Active Substance: CHOLECALCIFEROL
  4. FUROSEMIDE. [Concomitant]
     Active Substance: FUROSEMIDE
  5. LETROZOLE. [Concomitant]
     Active Substance: LETROZOLE
  6. STOOL SOFTNER [Concomitant]
  7. KLONOPIN [Concomitant]
     Active Substance: CLONAZEPAM
  8. POTASSIUM KLOR-CON [Concomitant]
  9. SIMVASTATIN. [Concomitant]
     Active Substance: SIMVASTATIN
  10. FENOFIBRATE. [Concomitant]
     Active Substance: FENOFIBRATE
  11. HUMALOG [Concomitant]
     Active Substance: INSULIN LISPRO
  12. HYDROCODONE/APAP [Concomitant]
     Active Substance: ACETAMINOPHEN\HYDROCODONE
  13. IRON [Concomitant]
     Active Substance: IRON

REACTIONS (2)
  - Insomnia [None]
  - Nausea [None]

NARRATIVE: CASE EVENT DATE: 201505
